FAERS Safety Report 21368115 (Version 2)
Quarter: 2022Q4

REPORT INFORMATION
  Report Type: Spontaneous
  Country: US (occurrence: US)
  Receive Date: 20220923
  Receipt Date: 20221021
  Transmission Date: 20230113
  Serious: No
  Sender: FDA-Public Use
  Company Number: US-GLAXOSMITHKLINE-US2022136331

PATIENT
  Sex: Female

DRUGS (1)
  1. ZEJULA [Suspect]
     Active Substance: NIRAPARIB
     Indication: Ovarian cancer
     Dosage: 200 MG, QD
     Dates: start: 20220829

REACTIONS (5)
  - Somnolence [Unknown]
  - Circadian rhythm sleep disorder [Unknown]
  - Abdominal pain upper [Unknown]
  - Central venous catheter removal [Unknown]
  - Product dose omission in error [Unknown]
